FAERS Safety Report 5819272-1 (Version None)
Quarter: 2008Q3

REPORT INFORMATION
  Report Type: 
  Country: None (occurrence: None)
  Receive Date: 20080723
  Receipt Date: 20080709
  Transmission Date: 20090109
  Serious: No
  Sender: FDA-Public Use
  Company Number: US-BAYER-200812797BCC

PATIENT
  Sex: Female

DRUGS (1)
  1. ALEVE CAPLETS (BOTTLE COUNT 100) [Suspect]
     Indication: SCIATICA
     Dosage: TOTAL DAILY DOSE: 440 MG  UNIT DOSE: 220 MG
     Dates: start: 20080618, end: 20080709

REACTIONS (2)
  - HAEMORRHAGE [None]
  - SCIATICA [None]
